FAERS Safety Report 14961307 (Version 1)
Quarter: 2018Q2

REPORT INFORMATION
  Report Type: Spontaneous
  Country: RO (occurrence: RO)
  Receive Date: 20180601
  Receipt Date: 20180601
  Transmission Date: 20180711
  Serious: Yes (Other)
  Sender: FDA-Public Use
  Company Number: RO-009507513-1805ROM011570

PATIENT
  Age: 21 Year
  Sex: Female

DRUGS (1)
  1. TEMOZOLOMIDE. [Suspect]
     Active Substance: TEMOZOLOMIDE
     Indication: ASTROCYTOMA, LOW GRADE
     Dosage: 250 MG, QD (5 DAYS/MONTH FOR 6 MONTHS)

REACTIONS (2)
  - Radiation necrosis [Recovered/Resolved]
  - Hemianopia homonymous [Recovered/Resolved]
